FAERS Safety Report 19518564 (Version 1)
Quarter: 2021Q3

REPORT INFORMATION
  Report Type: Spontaneous
  Country: US (occurrence: US)
  Receive Date: 20210712
  Receipt Date: 20210712
  Transmission Date: 20211014
  Serious: No
  Sender: FDA-Public Use
  Company Number: US-CIPLA LTD.-2021US04477

PATIENT

DRUGS (6)
  1. ATAZANAVIR. [Suspect]
     Active Substance: ATAZANAVIR
     Dosage: 1 TOTAL DAILY DOSE OF 400 (UNITS USNPECIFIED), 2ND COURSE
     Route: 048
  2. ATAZANAVIR. [Suspect]
     Active Substance: ATAZANAVIR
     Indication: ANTIRETROVIRAL THERAPY
     Dosage: 1 TOTAL DAILY DOSE, 1ST COURSE
     Route: 048
  3. RITONAVIR. [Suspect]
     Active Substance: RITONAVIR
     Indication: ANTIRETROVIRAL THERAPY
     Dosage: 1 TOTAL DAILY DOSE, 1ST COURSE
     Route: 048
  4. ZIDOVUDINE. [Suspect]
     Active Substance: ZIDOVUDINE
     Indication: ANTIRETROVIRAL THERAPY
     Dosage: 2 TOTAL DAILY DOSES, 1ST COURSE
     Route: 042
  5. EMTRICITABINE/TENOFOVIR [Suspect]
     Active Substance: EMTRICITABINE\TENOFOVIR
     Indication: ANTIRETROVIRAL THERAPY
     Dosage: UNK, 1 TOTAL DAILY DOSE, 1ST COURSE
     Route: 048
  6. ZIDOVUDINE. [Suspect]
     Active Substance: ZIDOVUDINE
     Dosage: 1 TOTAL DAILY DOSE, 2ND COURSE
     Route: 042

REACTIONS (2)
  - Exposure during pregnancy [Unknown]
  - No adverse event [Unknown]
